FAERS Safety Report 5753642-5 (Version None)
Quarter: 2008Q2

REPORT INFORMATION
  Report Type: 
  Country: None (occurrence: None)
  Receive Date: 20080530
  Receipt Date: 20080520
  Transmission Date: 20081010
  Serious: Yes (Hospitalization)
  Sender: FDA-Public Use
  Company Number: JP-JNJFOC-20080406529

PATIENT
  Sex: Male

DRUGS (15)
  1. LEVOFLOXACIN [Suspect]
     Indication: CYSTITIS
     Route: 048
  2. THEOPHYLLINE [Concomitant]
  3. HOKUNALIN [Concomitant]
  4. FRUCTLACT [Concomitant]
     Indication: STATUS ASTHMATICUS
     Route: 041
  5. NEOPHYLLIN [Concomitant]
     Indication: STATUS ASTHMATICUS
     Route: 041
  6. ADOAIR [Concomitant]
     Indication: STATUS ASTHMATICUS
     Route: 055
  7. DIGOXIN [Concomitant]
     Indication: CARDIAC FAILURE
     Route: 048
  8. LASIX [Concomitant]
     Indication: CARDIAC FAILURE
     Route: 048
  9. ALOTEC [Concomitant]
     Route: 048
  10. MUCODYNE [Concomitant]
     Route: 048
  11. DIOVAN [Concomitant]
     Route: 048
  12. PLAVIX [Concomitant]
     Route: 048
  13. CALSOT [Concomitant]
     Route: 048
  14. CEROCRAL [Concomitant]
     Route: 048
  15. MUCOSTA [Concomitant]
     Indication: CYSTITIS
     Route: 048

REACTIONS (2)
  - DIZZINESS [None]
  - RHABDOMYOLYSIS [None]
